FAERS Safety Report 9493682 (Version 5)
Quarter: 2013Q4

REPORT INFORMATION
  Report Type: Spontaneous
  Country: US (occurrence: US)
  Receive Date: 20130902
  Receipt Date: 20131126
  Transmission Date: 20140711
  Serious: Yes (Other)
  Sender: FDA-Public Use
  Company Number: US-BAXTER-2013BAX032718

PATIENT
  Age: 65 Year
  Sex: Female
  Weight: 109.05 kg

DRUGS (12)
  1. GAMMAGARD LIQUID [Suspect]
     Indication: SELECTIVE IGG SUBCLASS DEFICIENCY
     Route: 042
     Dates: start: 20130820, end: 20130820
  2. GAMMAGARD LIQUID [Suspect]
     Route: 042
     Dates: start: 20130806, end: 20130806
  3. GAMMAGARD LIQUID [Suspect]
     Route: 042
     Dates: start: 20111215
  4. DOXYCYCLINE [Suspect]
     Indication: PRODUCT USED FOR UNKNOWN INDICATION
     Route: 048
     Dates: start: 20130722, end: 201308
  5. MEDROL [Suspect]
     Indication: PRODUCT USED FOR UNKNOWN INDICATION
     Route: 048
     Dates: start: 20130723
  6. ACETAMINOPHEN [Concomitant]
     Indication: PRODUCT USED FOR UNKNOWN INDICATION
     Route: 048
     Dates: start: 20130806, end: 20130806
  7. MEPERIDINE [Concomitant]
     Indication: PRODUCT USED FOR UNKNOWN INDICATION
     Route: 042
     Dates: start: 20130806, end: 20130806
  8. RANITIDINE HCL [Concomitant]
     Indication: PRODUCT USED FOR UNKNOWN INDICATION
     Route: 042
     Dates: start: 20130806, end: 20130806
  9. BENADRYL [Concomitant]
     Indication: PRODUCT USED FOR UNKNOWN INDICATION
     Route: 048
     Dates: start: 20130806, end: 20130806
  10. SOLU-MEDROL [Concomitant]
     Indication: PRODUCT USED FOR UNKNOWN INDICATION
     Route: 042
     Dates: start: 20130806, end: 20130806
  11. NORMAL SALINE [Concomitant]
     Indication: PRODUCT USED FOR UNKNOWN INDICATION
     Route: 042
     Dates: start: 20130806, end: 20130806
  12. CARIMUNE [Concomitant]
     Indication: PRODUCT USED FOR UNKNOWN INDICATION
     Route: 065

REACTIONS (9)
  - Respiratory tract infection [Recovering/Resolving]
  - Nasopharyngitis [Recovering/Resolving]
  - Productive cough [Recovering/Resolving]
  - Back pain [Recovered/Resolved]
  - Chest discomfort [Recovered/Resolved]
  - Chest pain [Recovered/Resolved]
  - Feeling cold [Recovered/Resolved]
  - Tremor [Recovered/Resolved]
  - Sputum culture positive [Unknown]
